FAERS Safety Report 18542450 (Version 2)
Quarter: 2020Q4

REPORT INFORMATION
  Report Type: Spontaneous
  Country: US (occurrence: US)
  Receive Date: 20201124
  Receipt Date: 20201210
  Transmission Date: 20210114
  Serious: Yes (Other)
  Sender: FDA-Public Use
  Company Number: US-ASTRAZENECA-2020SF52214

PATIENT
  Age: 71 Year
  Sex: Female
  Weight: 89.4 kg

DRUGS (3)
  1. FULVESTRANT. [Suspect]
     Active Substance: FULVESTRANT
     Dosage: 2 INJECTIONS MONTHLY
     Route: 030
  2. IBRANCE [Suspect]
     Active Substance: PALBOCICLIB
     Indication: METASTASES TO BREAST
     Dosage: 125MG ONCE A DAY BY MOUTH FOR 3 WEEKS ON ONE WEEK
     Route: 048
     Dates: start: 20201102, end: 20201104
  3. IBRANCE [Suspect]
     Active Substance: PALBOCICLIB
     Indication: METASTASES TO BREAST
     Dosage: 125MG ONCE A DAY BY MOUTH FOR 3 WEEKS ON ONE WEEK
     Route: 048
     Dates: start: 20201005

REACTIONS (11)
  - Pneumonitis [Unknown]
  - Dyspnoea [Recovering/Resolving]
  - Pyrexia [Recovered/Resolved]
  - Blood count abnormal [Recovering/Resolving]
  - Respiratory disorder [Unknown]
  - Nasopharyngitis [Unknown]
  - Fatigue [Unknown]
  - Metastases to liver [Unknown]
  - Metastases to lung [Unknown]
  - Heart rate increased [Unknown]
  - Oxygen saturation decreased [Unknown]
